FAERS Safety Report 18274943 (Version 1)
Quarter: 2020Q3

REPORT INFORMATION
  Report Type: Report from Study
  Country: US (occurrence: US)
  Receive Date: 20200916
  Receipt Date: 20200916
  Transmission Date: 20201103
  Serious: Yes (Other)
  Sender: FDA-Public Use
  Company Number: US-GILEAD-2020-0494756

PATIENT
  Sex: Male

DRUGS (1)
  1. TENOFOVIR DISOPROXIL FUMARATE. [Suspect]
     Active Substance: TENOFOVIR DISOPROXIL FUMARATE
     Indication: CHRONIC HEPATITIS B
     Dosage: 25 MG, QD
     Route: 048
     Dates: start: 2019

REACTIONS (6)
  - Blood glucose abnormal [Unknown]
  - Hepatic pain [Unknown]
  - Spinal fracture [Not Recovered/Not Resolved]
  - Loss of consciousness [Unknown]
  - Blood calcium decreased [Not Recovered/Not Resolved]
  - Pain [Not Recovered/Not Resolved]
